FAERS Safety Report 8923578 (Version 1)
Quarter: 2012Q4

REPORT INFORMATION
  Report Type: 
  Country: GB (occurrence: GB)
  Receive Date: 20121123
  Receipt Date: 20121123
  Transmission Date: 20130627
  Serious: Yes (Death)
  Sender: FDA-Public Use
  Company Number: PHHY2012GB106011

PATIENT
  Age: 58 Year
  Sex: Female

DRUGS (1)
  1. NITROFURANTOIN [Suspect]
     Indication: URINARY TRACT INFECTION

REACTIONS (9)
  - Interstitial lung disease [Fatal]
  - Cough [Fatal]
  - Dyspnoea [Fatal]
  - Exercise tolerance decreased [Fatal]
  - Pulmonary fibrosis [Fatal]
  - Crepitations [Fatal]
  - Eosinophilia [Fatal]
  - Bronchiectasis [Fatal]
  - Neutrophilia [Fatal]
